FAERS Safety Report 6061696-4 (Version None)
Quarter: 2009Q1

REPORT INFORMATION
  Report Type: 
  Country: None (occurrence: None)
  Receive Date: 20090202
  Receipt Date: 20090121
  Transmission Date: 20090719
  Serious: Yes (Death)
  Sender: FDA-Public Use
  Company Number: US-AVENTIS-200910101US

PATIENT
  Sex: Female
  Weight: 88 kg

DRUGS (7)
  1. KETEK [Suspect]
     Indication: BRONCHITIS
     Dosage: DOSE: UNK
     Route: 048
     Dates: start: 20060101, end: 20060101
  2. ATUSS G [Concomitant]
     Dosage: DOSE QUANTITY: 4; DOSE UNIT: OUNCE
     Route: 048
     Dates: start: 20050101
  3. MONOPRIL [Concomitant]
     Dosage: DOSE: UNK
  4. LASIX [Concomitant]
     Dosage: DOSE: UNK
  5. PLAVIX [Concomitant]
     Dosage: DOSE: UNK
  6. DARVOCET-N 100 [Concomitant]
  7. TYLENOL [Concomitant]

REACTIONS (3)
  - DEATH [None]
  - INJURY [None]
  - UNEVALUABLE EVENT [None]
